FAERS Safety Report 20394526 (Version 3)
Quarter: 2022Q1

REPORT INFORMATION
  Report Type: Report from Study
  Country: MX (occurrence: MX)
  Receive Date: 20220129
  Receipt Date: 20220308
  Transmission Date: 20220423
  Serious: Yes (Other)
  Sender: FDA-Public Use
  Company Number: MX-NOVARTISPH-NVSC2022MX019069

PATIENT
  Sex: Female

DRUGS (1)
  1. GLYCOPYRRONIUM\INDACATEROL [Suspect]
     Active Substance: GLYCOPYRRONIUM\INDACATEROL
     Indication: Product used for unknown indication
     Dosage: 1 DOSAGE FORM, BID (110/50MCG)
     Route: 048

REACTIONS (5)
  - Asphyxia [Unknown]
  - Feeling abnormal [Unknown]
  - Trance [Unknown]
  - Malaise [Unknown]
  - Incorrect dose administered [Unknown]
